FAERS Safety Report 21826437 (Version 1)
Quarter: 2023Q1

REPORT INFORMATION
  Report Type: Report from Study
  Country: US (occurrence: US)
  Receive Date: 20230106
  Receipt Date: 20230106
  Transmission Date: 20230417
  Serious: Yes (Hospitalization)
  Sender: FDA-Public Use
  Company Number: US-SA-SAC20230104000962

PATIENT
  Age: 77 Year
  Sex: Male

DRUGS (1)
  1. BELUMOSUDIL MESYLATE [Suspect]
     Active Substance: BELUMOSUDIL MESYLATE
     Dosage: 200 MG, BID
     Route: 048
     Dates: start: 20220716

REACTIONS (1)
  - Precancerous cells present [Recovering/Resolving]
